FAERS Safety Report 6687409-0 (Version None)
Quarter: 2010Q2

REPORT INFORMATION
  Report Type: 
  Country: None (occurrence: None)
  Receive Date: 20100416
  Receipt Date: 20100416
  Transmission Date: 20101027
  Serious: Yes (Hospitalization)
  Sender: FDA-Public Use
  Company Number: None

PATIENT
  Age: 47 Year
  Sex: Male
  Weight: 84 kg

DRUGS (14)
  1. PEG-INTRON [Suspect]
  2. RIBAVIRIN [Suspect]
  3. PEGYLATED INTERFERON [Concomitant]
     Indication: HEPATITIS C
     Dosage: 1200 MCG WEEKLY SQ
     Route: 058
     Dates: start: 20091127, end: 20100301
  4. RIBAVIRIN [Concomitant]
     Indication: HEPATITIS C
     Dosage: 1000 MG DAILY PO
     Route: 048
     Dates: start: 20091127, end: 20100301
  5. PROGRAF [Concomitant]
  6. PREDNISONE [Concomitant]
  7. KEPPRA [Concomitant]
  8. LASIX [Concomitant]
  9. SPIRONOLACTONE [Concomitant]
  10. URSODIOL [Concomitant]
  11. VALCYTE [Concomitant]
  12. BACTRIM DS [Concomitant]
  13. OXYCONTIN [Concomitant]
  14. OXYCODONE HCL [Concomitant]

REACTIONS (8)
  - DECREASED APPETITE [None]
  - DRUG TOXICITY [None]
  - HYPOPHAGIA [None]
  - MENTAL STATUS CHANGES [None]
  - NEUTROPHIL COUNT DECREASED [None]
  - NO THERAPEUTIC RESPONSE [None]
  - PLATELET COUNT DECREASED [None]
  - WHITE BLOOD CELL COUNT DECREASED [None]
